FAERS Safety Report 12171384 (Version 1)
Quarter: 2016Q1

REPORT INFORMATION
  Report Type: Spontaneous
  Country: US (occurrence: None)
  Receive Date: 20160310
  Receipt Date: 20160310
  Transmission Date: 20160526
  Serious: Yes (Disabling, Other)
  Sender: FDA-Public Use
  Company Number: None

PATIENT
  Age: 43 Year
  Sex: Female
  Weight: 77.57 kg

DRUGS (20)
  1. HEATING PAD [Concomitant]
  2. IRON [Concomitant]
     Active Substance: IRON
  3. ALENDRONATE [Concomitant]
     Active Substance: ALENDRONATE SODIUM
  4. NEURONTIN [Concomitant]
     Active Substance: GABAPENTIN
  5. OMEPRAZOLE. [Concomitant]
     Active Substance: OMEPRAZOLE
  6. FERROUS SULFATE [Concomitant]
     Active Substance: FERROUS SULFATE\FERROUS SULFATE, DRIED
  7. FLURAZAPAM [Concomitant]
  8. CALUSUM [Concomitant]
  9. FLOWMAX D [Concomitant]
  10. BOTOX [Suspect]
     Active Substance: ONABOTULINUMTOXINA
     Indication: MIGRAINE
     Dosage: EVERY 3 MONTHS
     Dates: end: 201512
  11. CALTRATE CALCIUM + VITAMIN D [Concomitant]
  12. VITAMINS [Concomitant]
     Active Substance: VITAMINS
  13. METHOCARBAMOL. [Concomitant]
     Active Substance: METHOCARBAMOL
  14. SPRING VALLEY WHOLE HERB TURMERIC CURCUMIN [Concomitant]
  15. CYANOCOBALAMIN. [Concomitant]
     Active Substance: CYANOCOBALAMIN
  16. VITAMIN D [Concomitant]
     Active Substance: CHOLECALCIFEROL
  17. LAMICTAL [Concomitant]
     Active Substance: LAMOTRIGINE
  18. BIOFREEZE [Concomitant]
     Active Substance: MENTHOL
  19. TUMERIC [Concomitant]
     Active Substance: TURMERIC
  20. VITAMIN [Concomitant]
     Active Substance: VITAMINS

REACTIONS (8)
  - Haemorrhage [None]
  - Impaired gastric emptying [None]
  - Musculoskeletal pain [None]
  - Muscular weakness [None]
  - Musculoskeletal discomfort [None]
  - Nerve injury [None]
  - Motor dysfunction [None]
  - Muscle spasms [None]

NARRATIVE: CASE EVENT DATE: 20150112
